FAERS Safety Report 8865130 (Version 1)
Quarter: 2012Q4

REPORT INFORMATION
  Report Type: 
  Country: US (occurrence: US)
  Receive Date: 20121024
  Receipt Date: 20121024
  Transmission Date: 20130627
  Serious: No
  Sender: FDA-Public Use
  Company Number: US-AMGEN-USASP2012001150

PATIENT
  Sex: Female

DRUGS (9)
  1. ENBREL [Suspect]
     Indication: PRODUCT USED FOR UNKNOWN INDICATION
     Dosage: 50 mg, qwk
     Route: 058
  2. CALTRATE [Concomitant]
     Dosage: UNK
  3. AMLODIPINE [Concomitant]
     Dosage: 2.5 mg, UNK
  4. TRAMADOL HCL [Concomitant]
     Dosage: 50 mg, UNK
  5. FOLIC ACID [Concomitant]
     Dosage: 1 mg, UNK
  6. TOPROL [Concomitant]
     Dosage: 25 mg, UNK
  7. FISH OIL [Concomitant]
     Dosage: UNK
  8. BIOTIN [Concomitant]
     Dosage: 5000 DF, UNK
  9. MULTIVITAL [Concomitant]

REACTIONS (1)
  - Therapeutic response decreased [Unknown]
